FAERS Safety Report 23548171 (Version 1)
Quarter: 2024Q1

REPORT INFORMATION
  Report Type: Spontaneous
  Country: US (occurrence: None)
  Receive Date: 20240219
  Receipt Date: 20240219
  Transmission Date: 20240410
  Serious: Yes (Disabling)
  Sender: FDA-Public Use
  Company Number: None

PATIENT
  Age: 32 Year
  Sex: Female
  Weight: 68.04 kg

DRUGS (1)
  1. KYLEENA [Suspect]
     Active Substance: LEVONORGESTREL

REACTIONS (11)
  - Cyst [None]
  - Muscle spasms [None]
  - Pelvic pain [None]
  - Abdominal pain [None]
  - Headache [None]
  - Breast discomfort [None]
  - Acne [None]
  - Gastrointestinal disorder [None]
  - Weight increased [None]
  - Mental disorder [None]
  - Breast pain [None]

NARRATIVE: CASE EVENT DATE: 20190228
